FAERS Safety Report 20953160 (Version 4)
Quarter: 2022Q3

REPORT INFORMATION
  Report Type: Report from Study
  Country: US (occurrence: US)
  Receive Date: 20220613
  Receipt Date: 20220926
  Transmission Date: 20221027
  Serious: Yes (Other)
  Sender: FDA-Public Use
  Company Number: US-NOVARTISPH-NVSC2022US131830

PATIENT
  Age: 59 Year
  Sex: Female

DRUGS (3)
  1. GILENYA [Suspect]
     Active Substance: FINGOLIMOD HYDROCHLORIDE
     Indication: Multiple sclerosis
     Dosage: 0.5 MG, QD
     Route: 048
     Dates: start: 20171111
  2. GILENYA [Suspect]
     Active Substance: FINGOLIMOD HYDROCHLORIDE
     Dosage: 0.5 MG, QD
     Route: 048
     Dates: start: 20171209
  3. GILENYA [Suspect]
     Active Substance: FINGOLIMOD HYDROCHLORIDE
     Dosage: 0.5 MG, QD
     Route: 048
     Dates: start: 20220914, end: 20220922

REACTIONS (15)
  - Loss of consciousness [Recovering/Resolving]
  - Colitis ulcerative [Not Recovered/Not Resolved]
  - Haemorrhage [Unknown]
  - Illness [Unknown]
  - Blood iron abnormal [Unknown]
  - Haemoglobin abnormal [Unknown]
  - Dehydration [Recovering/Resolving]
  - Asthenia [Unknown]
  - Blood iron decreased [Not Recovered/Not Resolved]
  - Blood disorder [Unknown]
  - General physical condition abnormal [Unknown]
  - Condition aggravated [Unknown]
  - Anaemia [Unknown]
  - Blood pressure abnormal [Recovering/Resolving]
  - Product dose omission issue [Unknown]

NARRATIVE: CASE EVENT DATE: 20220430
